FAERS Safety Report 13768130 (Version 1)
Quarter: 2017Q3

REPORT INFORMATION
  Report Type: Spontaneous
  Country: US (occurrence: US)
  Receive Date: 20170719
  Receipt Date: 20170719
  Transmission Date: 20171127
  Serious: Yes (Other)
  Sender: FDA-Public Use
  Company Number: US-AMNEAL PHARMACEUTICALS-2017AMN00736

PATIENT
  Sex: Male
  Weight: 65.76 kg

DRUGS (4)
  1. LYRICA [Concomitant]
     Active Substance: PREGABALIN
     Indication: PAIN
     Dosage: 50 MG, 1X/DAY (25 MG IN THE DAY AND 50MG AT NIGHT)
     Dates: start: 201702, end: 20170429
  2. GABAPENTIN. [Suspect]
     Active Substance: GABAPENTIN
     Indication: PARAESTHESIA
  3. GABAPENTIN. [Suspect]
     Active Substance: GABAPENTIN
     Indication: PAIN
     Dosage: 400 MG, UNK
     Dates: end: 201612
  4. GABAPENTIN. [Suspect]
     Active Substance: GABAPENTIN
     Indication: BURNING SENSATION

REACTIONS (5)
  - Paraesthesia [Unknown]
  - Thrombocytopenia [Unknown]
  - Feeling abnormal [Unknown]
  - Burning sensation [Unknown]
  - Drug ineffective [Unknown]
